FAERS Safety Report 4807776-X (Version None)
Quarter: 2005Q4

REPORT INFORMATION
  Report Type: 
  Country: None (occurrence: None)
  Receive Date: 20051021
  Receipt Date: 20011008
  Transmission Date: 20060501
  Serious: No
  Sender: FDA-Public Use
  Company Number: US_011075445

PATIENT
  Age: 76 Year
  Sex: Male

DRUGS (1)
  1. ZYPREXA [Suspect]

REACTIONS (1)
  - WHITE BLOOD CELL COUNT DECREASED [None]
